FAERS Safety Report 21883572 (Version 2)
Quarter: 2024Q2

REPORT INFORMATION
  Report Type: Spontaneous
  Country: GB (occurrence: GB)
  Receive Date: 20230119
  Receipt Date: 20240410
  Transmission Date: 20240717
  Serious: Yes (Other)
  Sender: FDA-Public Use
  Company Number: GB-TEVA-2023-GB-2846868

PATIENT
  Age: 29 Year
  Sex: Female

DRUGS (8)
  1. ALBUTEROL [Suspect]
     Active Substance: ALBUTEROL
     Indication: Atrioventricular block complete
     Dosage: TIME INTERVAL: 0.333 DAYS
     Route: 065
  2. ALBUTEROL [Suspect]
     Active Substance: ALBUTEROL
     Indication: Atrioventricular block complete
     Dosage: TIME INTERVAL: 0.333 DAYS
     Route: 065
  3. ALBUTEROL [Suspect]
     Active Substance: ALBUTEROL
     Indication: Atrioventricular block complete
     Dosage: TIME INTERVAL: 0.333 DAYS
     Route: 065
  4. ALBUTEROL [Suspect]
     Active Substance: ALBUTEROL
     Indication: Atrioventricular block complete
     Dosage: TIME INTERVAL: 0.333 DAYS
     Route: 065
  5. ALBUTEROL [Suspect]
     Active Substance: ALBUTEROL
     Indication: Atrioventricular block complete
     Dosage: TIME INTERVAL: 0.333 DAYS
     Route: 065
  6. ALBUTEROL [Suspect]
     Active Substance: ALBUTEROL
     Indication: Atrioventricular block complete
     Dosage: DOSAGE TEXT: ADJUSTED TO TWO DOSES OF 2MG AND ONE OF 4MG PER DAY
     Route: 065
  7. HYDROXYCHLOROQUINE [Suspect]
     Active Substance: HYDROXYCHLOROQUINE
     Indication: Product used for unknown indication
     Route: 065
  8. ASPIRIN [Suspect]
     Active Substance: ASPIRIN
     Indication: Product used for unknown indication
     Route: 065

REACTIONS (4)
  - Sinus tachycardia [Unknown]
  - Tremor [Unknown]
  - Dizziness [Unknown]
  - Maternal exposure during pregnancy [Unknown]
